FAERS Safety Report 25523670 (Version 4)
Quarter: 2025Q4

REPORT INFORMATION
  Report Type: Spontaneous
  Country: BR (occurrence: BR)
  Receive Date: 20250707
  Receipt Date: 20251017
  Transmission Date: 20260118
  Serious: Yes (Other)
  Sender: AZURITY PHARMACEUTICALS
  Company Number: BR-AZURITY PHARMACEUTICALS, INC.-AZR202506-001875

PATIENT
  Age: 9 Year
  Sex: Female
  Weight: 30 kg

DRUGS (1)
  1. TRIPTORELIN [Suspect]
     Active Substance: TRIPTORELIN
     Indication: Precocious puberty
     Dosage: 3.75 MILLIGRAM(S), IN 1 CYCLICAL (A SINGLE DOSE APPLICATION)
     Route: 030
     Dates: start: 20250601, end: 20250801

REACTIONS (2)
  - Intracranial pressure increased [Unknown]
  - Headache [Recovered/Resolved]

NARRATIVE: CASE EVENT DATE: 20250601
